FAERS Safety Report 9835386 (Version 2)
Quarter: 2014Q1

REPORT INFORMATION
  Report Type: Spontaneous
  Country: US (occurrence: US)
  Receive Date: 20140122
  Receipt Date: 20140122
  Transmission Date: 20141002
  Serious: No
  Sender: FDA-Public Use
  Company Number: US-BRISTOL-MYERS SQUIBB COMPANY-19537026

PATIENT
  Age: 80 Year
  Sex: Male
  Weight: 113.38 kg

DRUGS (7)
  1. ELIQUIS [Suspect]
     Dosage: RX: 7044740
  2. TOPROL XL [Concomitant]
  3. ARICEPT [Concomitant]
  4. ZOCOR [Concomitant]
  5. FLOMAX [Concomitant]
  6. PAXIL [Concomitant]
  7. ASPIRIN [Concomitant]

REACTIONS (1)
  - Drug dose omission [Unknown]
